FAERS Safety Report 7565743-X (Version None)
Quarter: 2011Q2

REPORT INFORMATION
  Report Type: 
  Country: None (occurrence: None)
  Receive Date: 20110616
  Receipt Date: 20110610
  Transmission Date: 20111010
  Serious: Yes (Other)
  Sender: FDA-Public Use
  Company Number: 2010SP064933

PATIENT
  Age: 39 Year
  Sex: Female
  Weight: 81.6475 kg

DRUGS (3)
  1. NUVARING [Suspect]
     Indication: CONTRACEPTION
     Dates: start: 20060401, end: 20081201
  2. COUMADIN [Suspect]
     Indication: COAGULOPATHY
     Dates: start: 20081201, end: 20090101
  3. VITAMIN B COMPLEX CAP [Concomitant]

REACTIONS (37)
  - THROMBOPHLEBITIS SUPERFICIAL [None]
  - AMNESIA [None]
  - PAPILLOMA VIRAL INFECTION [None]
  - ANGINA PECTORIS [None]
  - HAEMORRHOIDS [None]
  - CEREBROVASCULAR ACCIDENT [None]
  - OVARIAN CYST [None]
  - HEART RATE IRREGULAR [None]
  - THROMBOPHLEBITIS [None]
  - PALPITATIONS [None]
  - LEFT ATRIAL DILATATION [None]
  - PULMONARY EMBOLISM [None]
  - HYPERCOAGULATION [None]
  - CONVULSION [None]
  - ALTERED STATE OF CONSCIOUSNESS [None]
  - ANXIETY [None]
  - MAY-THURNER SYNDROME [None]
  - WOUND DEHISCENCE [None]
  - ILIAC VEIN OCCLUSION [None]
  - DEEP VEIN THROMBOSIS [None]
  - TACHYCARDIA [None]
  - CERVICAL DYSPLASIA [None]
  - MUSCLE STRAIN [None]
  - STRESS [None]
  - PULMONARY HYPERTENSION [None]
  - SMEAR CERVIX ABNORMAL [None]
  - TRICUSPID VALVE INCOMPETENCE [None]
  - INTESTINAL PERFORATION [None]
  - ABDOMINAL PAIN UPPER [None]
  - CONFUSIONAL STATE [None]
  - RECTAL HAEMORRHAGE [None]
  - THROMBOSIS [None]
  - LACERATION [None]
  - MITRAL VALVE INCOMPETENCE [None]
  - MULTIPLE INJURIES [None]
  - COLONIC POLYP [None]
  - INTERNATIONAL NORMALISED RATIO INCREASED [None]
